FAERS Safety Report 23752927 (Version 3)
Quarter: 2024Q2

REPORT INFORMATION
  Report Type: Spontaneous
  Country: US (occurrence: US)
  Receive Date: 20240417
  Receipt Date: 20240624
  Transmission Date: 20240715
  Serious: Yes (Hospitalization)
  Sender: FDA-Public Use
  Company Number: US-PFIZER INC-PV202400038473

PATIENT
  Age: 51 Year
  Sex: Male
  Weight: 79.4 kg

DRUGS (1)
  1. TIKOSYN [Suspect]
     Active Substance: DOFETILIDE
     Indication: Cardiac failure
     Dosage: TAKE 1 CAPSULE (125 MCG TOTAL) BY MOUTH EVERY 12 (TWELVE) HOURS
     Route: 048
     Dates: start: 20240401, end: 20240508

REACTIONS (2)
  - Cardiac disorder [Recovering/Resolving]
  - Off label use [Unknown]

NARRATIVE: CASE EVENT DATE: 20240425
